FAERS Safety Report 7588441-5 (Version None)
Quarter: 2011Q3

REPORT INFORMATION
  Report Type: 
  Country: None (occurrence: None)
  Receive Date: 20110705
  Receipt Date: 20110627
  Transmission Date: 20111222
  Serious: Yes (Hospitalization, Other)
  Sender: FDA-Public Use
  Company Number: US-BAYER-200943225NA

PATIENT
  Age: 20 Year
  Sex: Female
  Weight: 61 kg

DRUGS (9)
  1. YASMIN [Suspect]
     Indication: ORAL CONTRACEPTION
     Dosage: UNK UNK, QD
     Route: 048
     Dates: start: 20050505, end: 20090324
  2. XYZAL [Concomitant]
     Indication: MULTIPLE ALLERGIES
     Route: 065
     Dates: start: 20081001
  3. YASMIN [Suspect]
     Indication: ACNE
  4. ANTIINFLAMMATORY/ANTIRHEUMATIC NON-STEROIDS [Concomitant]
     Indication: PRODUCT USED FOR UNKNOWN INDICATION
     Route: 065
  5. ANTIALLERGIC DRUG [Concomitant]
     Indication: HYPERSENSITIVITY
     Route: 065
     Dates: start: 20081001
  6. MOTRIN [Concomitant]
     Indication: PAIN
     Route: 065
  7. EXCEDRIN (MIGRAINE) [Concomitant]
     Indication: PAIN
     Route: 065
  8. ALLEGRA D 24 HOUR [Concomitant]
     Indication: MULTIPLE ALLERGIES
     Route: 065
     Dates: start: 20081001
  9. ERYTHROMYCIN [Concomitant]
     Indication: PRODUCT USED FOR UNKNOWN INDICATION
     Route: 065
     Dates: start: 20071201, end: 20071201

REACTIONS (4)
  - ABDOMINAL PAIN UPPER [None]
  - ABDOMINAL PAIN [None]
  - SPHINCTER OF ODDI DYSFUNCTION [None]
  - CHOLECYSTITIS CHRONIC [None]
